FAERS Safety Report 7096286-8 (Version None)
Quarter: 2010Q4

REPORT INFORMATION
  Report Type: 
  Country: None (occurrence: None)
  Receive Date: 20101111
  Receipt Date: 20101105
  Transmission Date: 20110411
  Serious: Yes (Death, Congenital Anomaly)
  Sender: FDA-Public Use
  Company Number: MX-BRISTOL-MYERS SQUIBB COMPANY-15377328

PATIENT
  Age: 1 Day

DRUGS (3)
  1. SAXAGLIPTIN [Suspect]
     Route: 064
     Dates: start: 20100122, end: 20100306
  2. METFORMIN HCL [Suspect]
     Route: 064
     Dates: start: 20100122, end: 20100306
  3. INSULIN [Suspect]
     Route: 064
     Dates: start: 20100122

REACTIONS (5)
  - CONGENITAL ANOMALY [None]
  - MATERNAL DRUGS AFFECTING FOETUS [None]
  - NEONATAL RESPIRATORY DISTRESS SYNDROME [None]
  - PREMATURE BABY [None]
  - STILLBIRTH [None]
